FAERS Safety Report 8548438-5 (Version None)
Quarter: 2012Q3

REPORT INFORMATION
  Report Type: 
  Country: None (occurrence: None)
  Receive Date: 20120719
  Receipt Date: 20120719
  Transmission Date: 20120928
  Serious: No
  Sender: FDA-Public Use
  Company Number: None

PATIENT
  Sex: Female

DRUGS (1)
  1. CREST PRO-HEALTH CLINICAL DEEP CLEAN MINT RINSE [Suspect]
     Dates: start: 20120706

REACTIONS (2)
  - AGEUSIA [None]
  - ORAL DISCOMFORT [None]
